FAERS Safety Report 6810037-0 (Version None)
Quarter: 2010Q2

REPORT INFORMATION
  Report Type: 
  Country: None (occurrence: None)
  Receive Date: 20100630
  Receipt Date: 20100625
  Transmission Date: 20101027
  Serious: Yes (Other)
  Sender: FDA-Public Use
  Company Number: D0067574A

PATIENT
  Age: 40 Year
  Sex: Female

DRUGS (1)
  1. MALARONE [Suspect]
     Indication: MALARIA PROPHYLAXIS
     Route: 048

REACTIONS (7)
  - CLAUSTROPHOBIA [None]
  - DIZZINESS [None]
  - FEAR [None]
  - HALLUCINATION [None]
  - NIGHTMARE [None]
  - PANIC ATTACK [None]
  - TUNNEL VISION [None]
